FAERS Safety Report 25099413 (Version 4)
Quarter: 2025Q2

REPORT INFORMATION
  Report Type: Spontaneous
  Country: PL (occurrence: PL)
  Receive Date: 20250320
  Receipt Date: 20250420
  Transmission Date: 20250717
  Serious: Yes (Hospitalization, Other)
  Sender: AUROBINDO
  Company Number: PL-GEN-2025-2323

PATIENT
  Age: 78 Year
  Sex: Female

DRUGS (15)
  1. ACETYLCYSTEINE [Suspect]
     Active Substance: ACETYLCYSTEINE
     Indication: Productive cough
     Route: 065
  2. QUETIAPINE [Suspect]
     Active Substance: QUETIAPINE
     Indication: Insomnia
     Dosage: 50 MILLIGRAM, ONCE A DAY
     Route: 065
  3. ESOMEPRAZOLE [Suspect]
     Active Substance: ESOMEPRAZOLE
     Indication: Abdominal pain
     Dosage: 40 MILLIGRAM, ONCE A DAY
     Route: 048
  4. ERDOSTEINE [Suspect]
     Active Substance: ERDOSTEINE
     Indication: Productive cough
     Route: 065
  5. AMBROXOL [Suspect]
     Active Substance: AMBROXOL
     Indication: Productive cough
     Route: 065
  6. TELMISARTAN [Concomitant]
     Active Substance: TELMISARTAN
     Indication: Hypertension
     Route: 065
  7. TELMISARTAN [Concomitant]
     Active Substance: TELMISARTAN
     Indication: Type 2 diabetes mellitus
  8. INDAPAMIDE [Concomitant]
     Active Substance: INDAPAMIDE
     Indication: Hypertension
     Route: 065
  9. INDAPAMIDE [Concomitant]
     Active Substance: INDAPAMIDE
     Indication: Type 2 diabetes mellitus
  10. DAPAGLIFLOZIN [Concomitant]
     Active Substance: DAPAGLIFLOZIN
     Indication: Type 2 diabetes mellitus
     Route: 065
  11. DAPAGLIFLOZIN [Concomitant]
     Active Substance: DAPAGLIFLOZIN
     Indication: Hypertension
  12. METFORMIN [Concomitant]
     Active Substance: METFORMIN HYDROCHLORIDE
     Indication: Hypertension
     Route: 065
  13. METFORMIN [Concomitant]
     Active Substance: METFORMIN HYDROCHLORIDE
     Indication: Type 2 diabetes mellitus
  14. ESOMEPRAZOLE [Concomitant]
     Active Substance: ESOMEPRAZOLE
     Indication: Abdominal pain
     Dosage: 40 MILLIGRAM, ONCE A DAY
     Route: 065
  15. INDAPAMIDE\TELMISARTAN [Concomitant]
     Active Substance: INDAPAMIDE\TELMISARTAN
     Indication: Hypertension
     Route: 065

REACTIONS (7)
  - Pneumonia [Recovered/Resolved]
  - Lower respiratory tract infection [Recovered/Resolved]
  - Drug interaction [Recovered/Resolved]
  - Drug ineffective [Unknown]
  - Productive cough [Recovered/Resolved]
  - Off label use [Unknown]
  - Product use in unapproved indication [Unknown]
